FAERS Safety Report 11774757 (Version 2)
Quarter: 2016Q1

REPORT INFORMATION
  Report Type: Spontaneous
  Country: US (occurrence: US)
  Receive Date: 20151124
  Receipt Date: 20160226
  Transmission Date: 20160525
  Serious: No
  Sender: FDA-Public Use
  Company Number: US-PURDUE-USA-2015-0126927

PATIENT
  Sex: Female
  Weight: 53.61 kg

DRUGS (1)
  1. HYSINGLA ER [Suspect]
     Active Substance: HYDROCODONE BITARTRATE
     Indication: BACK PAIN
     Dosage: 100 MG, Q24H
     Route: 048
     Dates: start: 20150728, end: 20150901

REACTIONS (3)
  - Choking [Recovered/Resolved]
  - Dysphagia [Unknown]
  - Vomiting [Recovered/Resolved]
